FAERS Safety Report 11768838 (Version 2)
Quarter: 2015Q4

REPORT INFORMATION
  Report Type: Spontaneous
  Country: US (occurrence: US)
  Receive Date: 20151123
  Receipt Date: 20151231
  Transmission Date: 20160304
  Serious: No
  Sender: FDA-Public Use
  Company Number: US-PFIZER INC-2015386701

PATIENT
  Age: 55 Year
  Sex: Female

DRUGS (3)
  1. AMITRIPTYLINE [Concomitant]
     Active Substance: AMITRIPTYLINE
     Dosage: UNK
  2. IBRANCE [Suspect]
     Active Substance: PALBOCICLIB
     Indication: BREAST CANCER
     Dosage: 125 MG, DAILY FOR 21 DAYS AND 7 DAYS OF REST
     Route: 048
     Dates: start: 20151020
  3. LETROZOLE. [Suspect]
     Active Substance: LETROZOLE
     Dosage: UNK

REACTIONS (8)
  - Breast pain [Unknown]
  - Breast inflammation [Unknown]
  - Rhinorrhoea [Unknown]
  - White blood cell count decreased [Unknown]
  - Chest discomfort [Unknown]
  - Cough [Unknown]
  - Alopecia [Unknown]
  - Aphthous ulcer [Recovered/Resolved]
